FAERS Safety Report 15103321 (Version 1)
Quarter: 2018Q3

REPORT INFORMATION
  Report Type: Report from Study
  Country: FR (occurrence: FR)
  Receive Date: 20180703
  Receipt Date: 20180703
  Transmission Date: 20181010
  Serious: Yes (Other)
  Sender: FDA-Public Use
  Company Number: FR-CELGENEUS-FRA-20180608676

PATIENT
  Age: 84 Year
  Sex: Male
  Weight: 65 kg

DRUGS (3)
  1. LENALIDOMIDE [Suspect]
     Active Substance: LENALIDOMIDE
     Indication: MANTLE CELL LYMPHOMA
     Dosage: 15 MG
     Route: 048
     Dates: start: 20180105, end: 20180613
  2. RITUXIMAB. [Suspect]
     Active Substance: RITUXIMAB
     Indication: MANTLE CELL LYMPHOMA
     Dosage: 1400 MG
     Route: 058
     Dates: start: 20180104, end: 20180425
  3. RITUXIMAB. [Suspect]
     Active Substance: RITUXIMAB
     Route: 065
     Dates: start: 20170717, end: 20171120

REACTIONS (1)
  - Lip and/or oral cavity cancer [Not Recovered/Not Resolved]

NARRATIVE: CASE EVENT DATE: 20180619
